FAERS Safety Report 9385940 (Version 1)
Quarter: 2013Q3

REPORT INFORMATION
  Report Type: Spontaneous
  Country: DE (occurrence: DE)
  Receive Date: 20130705
  Receipt Date: 20130705
  Transmission Date: 20140515
  Serious: Yes (Hospitalization, Other)
  Sender: FDA-Public Use
  Company Number: DE-SANOFI-AVENTIS-2013SA065060

PATIENT
  Age: 0 Year
  Sex: Male
  Weight: 2.99 kg

DRUGS (7)
  1. DOLANTINA [Suspect]
     Indication: INTERVERTEBRAL DISC PROTRUSION
     Route: 064
  2. DUROGESIC [Suspect]
     Indication: INTERVERTEBRAL DISC PROTRUSION
     Route: 064
     Dates: start: 20070622, end: 200801
  3. DIPIDOLOR [Suspect]
     Indication: INTERVERTEBRAL DISC PROTRUSION
     Route: 064
  4. LYRICA [Concomitant]
     Indication: INTERVERTEBRAL DISC PROTRUSION
     Route: 064
     Dates: start: 20070622, end: 200709
  5. CYMBALTA [Concomitant]
     Indication: INTERVERTEBRAL DISC PROTRUSION
     Route: 064
     Dates: start: 20070622, end: 200709
  6. FOLSAN [Concomitant]
     Indication: PROPHYLAXIS OF NEURAL TUBE DEFECT
     Route: 064
     Dates: start: 200708, end: 200710
  7. GLUCOCORTICOIDS [Concomitant]
     Indication: MATERNAL THERAPY TO ENHANCE FOETAL LUNG MATURITY
     Route: 064
     Dates: start: 200712

REACTIONS (4)
  - Drug withdrawal syndrome neonatal [Recovered/Resolved]
  - Foetal exposure timing unspecified [Recovered/Resolved]
  - Restlessness [Recovered/Resolved]
  - Hyperbilirubinaemia neonatal [Recovered/Resolved]
